FAERS Safety Report 10038059 (Version 1)
Quarter: 2014Q1

REPORT INFORMATION
  Report Type: Spontaneous
  Country: US (occurrence: None)
  Receive Date: 20140306
  Receipt Date: 20140306
  Transmission Date: 20141002
  Serious: Yes (Other)
  Sender: FDA-Public Use
  Company Number: 163-21880-13043737

PATIENT
  Age: 85 Year
  Sex: Female

DRUGS (9)
  1. REVLIMID (LENALIDOMIDE) (CAPSULES) [Suspect]
     Indication: PLASMA CELL MYELOMA
     Dosage: 21 IN 28 D
     Route: 048
     Dates: start: 201212
  2. HYDROCODONE ACETAMINOPHEN (PROCET /USA/) [Concomitant]
  3. PROCHLORPERAZINE(PROCHLORPERAZINE) [Concomitant]
  4. SENNOSIDES (SENNOSIDE A+B) [Concomitant]
  5. ONDANSETRON (ONDANSETRON) [Concomitant]
  6. FAMOTIDINE (FAMOTIDINE) [Concomitant]
  7. LOSARTAN (LOSARTAN) [Concomitant]
  8. LOVASTATIN (LOVASTATIN) [Concomitant]
  9. ATENOLOL (ATENOLOL) [Concomitant]

REACTIONS (1)
  - Deep vein thrombosis [None]
